FAERS Safety Report 19032826 (Version 3)
Quarter: 2021Q2

REPORT INFORMATION
  Report Type: Report from Study
  Country: US (occurrence: US)
  Receive Date: 20210319
  Receipt Date: 20210621
  Transmission Date: 20210717
  Serious: Yes (Hospitalization, Other)
  Sender: FDA-Public Use
  Company Number: US-OTSUKA-2021_003802

PATIENT
  Age: 76 Year
  Sex: Male

DRUGS (2)
  1. ASTX727 [Suspect]
     Active Substance: CEDAZURIDINE\DECITABINE
     Indication: CHRONIC MYELOMONOCYTIC LEUKAEMIA
     Dosage: 135 MG (35 MG DECITABINE AND 100 MG CEDAZURIDINE), QD ON DAYS 1?5 OF EACH 28 DAY CYCLE
     Route: 048
     Dates: start: 20210120
  2. ASTX727 [Suspect]
     Active Substance: CEDAZURIDINE\DECITABINE
     Dosage: 135 MG (35 MG DECITABINE AND 100 MG CEDAZURIDINE), QD ON DAYS 1?5 OF EACH 28 DAY CYCLE
     Route: 048
     Dates: start: 20210120

REACTIONS (14)
  - Atrial fibrillation [Unknown]
  - White blood cell disorder [Unknown]
  - Haemoglobin decreased [Unknown]
  - Pain [Unknown]
  - Chills [Unknown]
  - Pyrexia [Unknown]
  - Cardiac failure congestive [Recovered/Resolved]
  - Blood count abnormal [Unknown]
  - Fatigue [Unknown]
  - Skin lesion [Unknown]
  - Urinary tract infection [Unknown]
  - Headache [Unknown]
  - Nausea [Unknown]
  - Platelet count decreased [Unknown]

NARRATIVE: CASE EVENT DATE: 20210430
